FAERS Safety Report 9832174 (Version 1)
Quarter: 2014Q1

REPORT INFORMATION
  Report Type: Spontaneous
  Country: US (occurrence: US)
  Receive Date: 20140121
  Receipt Date: 20140121
  Transmission Date: 20141002
  Serious: Yes (Disabling)
  Sender: FDA-Public Use
  Company Number: US-GE HEALTHCARE MEDICAL DIAGNOSTICS-OSCN-PR-0811S-0599

PATIENT
  Age: 80 Year
  Sex: Female

DRUGS (1)
  1. OMNISCAN [Suspect]
     Indication: RENAL ARTERY ARTERIOSCLEROSIS
     Dates: start: 20040603, end: 20040603

REACTIONS (1)
  - Nephrogenic systemic fibrosis [Not Recovered/Not Resolved]
